FAERS Safety Report 6930825-X (Version None)
Quarter: 2010Q3

REPORT INFORMATION
  Report Type: 
  Country: None (occurrence: None)
  Receive Date: 20100818
  Receipt Date: 20100816
  Transmission Date: 20110219
  Serious: Yes (Hospitalization)
  Sender: FDA-Public Use
  Company Number: CA-BRISTOL-MYERS SQUIBB COMPANY-15207343

PATIENT
  Age: 58 Year
  Sex: Male

DRUGS (15)
  1. CARBOPLATIN [Suspect]
     Indication: HEAD AND NECK CANCER
     Dosage: LAST DOSE ON :22MAR2010
     Dates: start: 20100222
  2. CISPLATIN [Suspect]
     Indication: HEAD AND NECK CANCER
     Dosage: LAST DOSE ON:07FEB2010
     Dates: start: 20091222, end: 20100207
  3. ABRAXANE [Suspect]
     Indication: HEAD AND NECK CANCER
     Dosage: LAST DOSE ON:07FEB2010
     Dates: start: 20091222, end: 20100207
  4. FLUOROURACIL [Suspect]
     Indication: HEAD AND NECK CANCER
     Dates: start: 20091223, end: 20100207
  5. RADIATION THERAPY [Suspect]
     Indication: HEAD AND NECK CANCER
     Dosage: 1DF=5000 UT; LAST DOSE RECEIVED ON 09APR2010 70GY IN 35 FRACTIONS
     Route: 042
     Dates: start: 20100222
  6. FENTANYL-75 [Concomitant]
  7. MORPHINE [Concomitant]
     Dosage: 1DF=5MG/ML
  8. ENSURE [Concomitant]
     Dosage: 1DF= 7 CANS (VIA G TUBE)
  9. NORMAL SALINE [Concomitant]
     Route: 042
  10. LORAZEPAM [Concomitant]
  11. GRAVOL TAB [Concomitant]
  12. NEXIUM [Concomitant]
  13. COLACE [Concomitant]
  14. LACTULOSE [Concomitant]
  15. SENOKOT [Concomitant]

REACTIONS (3)
  - MUCOSAL INFLAMMATION [None]
  - ORAL PAIN [None]
  - WEIGHT DECREASED [None]
